FAERS Safety Report 8016382-8 (Version None)
Quarter: 2011Q4

REPORT INFORMATION
  Report Type: 
  Country: None (occurrence: None)
  Receive Date: 20111230
  Receipt Date: 20111227
  Transmission Date: 20120403
  Serious: Yes (Disabling, Other)
  Sender: FDA-Public Use
  Company Number: ES-ROCHE-1007425

PATIENT
  Sex: Male

DRUGS (6)
  1. MABTHERA [Suspect]
     Indication: NON-HODGKIN'S LYMPHOMA
     Route: 042
     Dates: start: 20100902, end: 20110203
  2. BENDAMUSTINE [Suspect]
     Indication: NON-HODGKIN'S LYMPHOMA
     Route: 042
     Dates: start: 20100902, end: 20110203
  3. ACFOL [Concomitant]
     Indication: ANTIBIOTIC PROPHYLAXIS
     Route: 048
     Dates: start: 20100903
  4. SEPTRIN FORTE [Concomitant]
     Indication: ANTIBIOTIC PROPHYLAXIS
     Dosage: DOSE: 160/800
     Route: 048
     Dates: start: 20100903
  5. MABTHERA [Suspect]
     Dosage: MAINTENANCE
     Dates: start: 20110714, end: 20111020
  6. ACYCLOVIR [Concomitant]
     Indication: ANTIBIOTIC PROPHYLAXIS
     Route: 048
     Dates: start: 20100903

REACTIONS (2)
  - EAR INFECTION [None]
  - NEUROSENSORY HYPOACUSIS [None]
